FAERS Safety Report 5991944-8 (Version None)
Quarter: 2008Q4

REPORT INFORMATION
  Report Type: 
  Country: None (occurrence: None)
  Receive Date: 20081211
  Receipt Date: 20081205
  Transmission Date: 20090506
  Serious: Yes (Hospitalization)
  Sender: FDA-Public Use
  Company Number: JP-B.I. PHARMACEUTICALS,INC./RIDGEFIELD-2008-BP-17826NB

PATIENT
  Age: 65 Year
  Sex: Male

DRUGS (9)
  1. BI-SIFROL TABLETS [Suspect]
     Indication: RESTLESS LEGS SYNDROME
     Dosage: .25MG
     Route: 048
     Dates: start: 20061225, end: 20080401
  2. CLONAZEPAM [Concomitant]
     Indication: RESTLESS LEGS SYNDROME
     Dosage: .5MG
     Route: 048
  3. MEVALOTIN [Concomitant]
     Indication: HYPERLIPIDAEMIA
     Dosage: 5MG
     Route: 048
  4. DIAZEPAM [Concomitant]
     Indication: INSOMNIA
     Dosage: 2MG
     Route: 048
  5. RENIVACE [Concomitant]
     Indication: HYPERTENSION
     Dosage: 2.5MG
     Route: 048
  6. BLOPRESS [Concomitant]
     Indication: HYPERTENSION
     Dosage: 12MG
     Route: 048
  7. OLMETEC [Concomitant]
     Indication: HYPERTENSION
     Dosage: 20MG
     Route: 048
     Dates: end: 20080704
  8. CYANOCOBALAMIN [Concomitant]
     Indication: HYPERTENSION
     Dosage: 1500MCG
     Route: 048
     Dates: end: 20080704
  9. MYSLEE [Concomitant]
     Indication: INSOMNIA
     Dosage: 10MG
     Route: 048

REACTIONS (3)
  - DYSAESTHESIA [None]
  - IMPULSE-CONTROL DISORDER [None]
  - SLEEP APNOEA SYNDROME [None]
